FAERS Safety Report 4341567-1 (Version None)
Quarter: 2004Q2

REPORT INFORMATION
  Report Type: 
  Country: None (occurrence: None)
  Receive Date: 20040415
  Receipt Date: 20040406
  Transmission Date: 20050107
  Serious: Yes (Death, Hospitalization, Congenital Anomaly)
  Sender: FDA-Public Use
  Company Number: 2004-01-1813

PATIENT
  Sex: Male
  Weight: 1.2 kg

DRUGS (3)
  1. SALBUTAMOL SULPHATE ORAL AEROSOL ^LIKE PROVENTIL HFA^ [Suspect]
     Dosage: ORAL AER INH
     Route: 055
  2. BECLOMETHASONE DIPROPIONATE [Suspect]
     Dosage: INHALATION
     Route: 055
  3. ATACAND [Suspect]
     Dosage: ORAL
     Route: 048

REACTIONS (19)
  - AMNIOTIC CAVITY DISORDER [None]
  - ANURIA [None]
  - BLADDER AGENESIS [None]
  - CONGENITAL FOOT MALFORMATION [None]
  - CRANIAL SUTURES WIDENING [None]
  - DRUG EXPOSURE DURING PREGNANCY [None]
  - ELECTROCARDIOGRAM ABNORMAL [None]
  - FOETAL GROWTH RETARDATION [None]
  - HYPOSPADIAS [None]
  - JOINT CONTRACTURE [None]
  - KIDNEY ENLARGEMENT [None]
  - KIDNEY MALFORMATION [None]
  - MULTIPLE CONGENITAL ABNORMALITIES [None]
  - NEONATAL HYPOTENSION [None]
  - PREMATURE BABY [None]
  - PULMONARY CONGESTION [None]
  - RENAL AGENESIS [None]
  - SINGLE FUNCTIONAL KIDNEY [None]
  - SKULL MALFORMATION [None]
